FAERS Safety Report 9412207 (Version 1)
Quarter: 2013Q3

REPORT INFORMATION
  Report Type: Spontaneous
  Country: US (occurrence: US)
  Receive Date: 20130722
  Receipt Date: 20130722
  Transmission Date: 20140515
  Serious: Yes (Hospitalization)
  Sender: FDA-Public Use
  Company Number: US-SANOFI-AVENTIS-2013SA072890

PATIENT
  Sex: Female

DRUGS (2)
  1. LANTUS [Suspect]
  2. METFORMIN [Suspect]
     Route: 065

REACTIONS (2)
  - Transient ischaemic attack [Unknown]
  - Contusion [Unknown]
